FAERS Safety Report 9287924 (Version 2)
Quarter: 2013Q2

REPORT INFORMATION
  Report Type: Report from Study
  Country: DE (occurrence: DE)
  Receive Date: 20130514
  Receipt Date: 20130522
  Transmission Date: 20140414
  Serious: Yes (Other)
  Sender: FDA-Public Use
  Company Number: DE-EISAI INC-E7389-03803-CLI-DE

PATIENT
  Age: 62 Year
  Sex: Female
  Weight: 58 kg

DRUGS (4)
  1. HALAVEN [Suspect]
     Indication: BREAST CANCER
     Route: 041
     Dates: start: 20130307, end: 20130429
  2. FRAGMIN P FORTE [Concomitant]
     Indication: THROMBOSIS PROPHYLAXIS
     Route: 057
     Dates: start: 20130226
  3. OPIPRAMOL [Concomitant]
     Indication: FATIGUE
     Route: 048
     Dates: start: 20130513
  4. OPIPRAMOL [Concomitant]
     Indication: ASTHENIA

REACTIONS (1)
  - Psychogenic tremor [Recovered/Resolved]
